FAERS Safety Report 6824045-7 (Version None)
Quarter: 2010Q3

REPORT INFORMATION
  Report Type: 
  Country: None (occurrence: None)
  Receive Date: 20100708
  Receipt Date: 20061102
  Transmission Date: 20110219
  Serious: No
  Sender: FDA-Public Use
  Company Number: US-PFIZER INC-2006115054

PATIENT
  Sex: Female
  Weight: 51.71 kg

DRUGS (8)
  1. CHANTIX [Suspect]
     Indication: SMOKING CESSATION THERAPY
     Dates: start: 20060922, end: 20060901
  2. MULTI-VITAMINS [Concomitant]
  3. PRILOSEC [Concomitant]
  4. LEVSIN [Concomitant]
  5. PREMARIN [Concomitant]
  6. ALLEGRA [Concomitant]
  7. DITROPAN [Concomitant]
  8. ACETYLSALICYLIC ACID [Concomitant]

REACTIONS (3)
  - DEPRESSED MOOD [None]
  - INCREASED APPETITE [None]
  - NAUSEA [None]
